FAERS Safety Report 9934407 (Version 1)
Quarter: 2014Q1

REPORT INFORMATION
  Report Type: Spontaneous
  Country: JP (occurrence: JP)
  Receive Date: 20140228
  Receipt Date: 20140228
  Transmission Date: 20141002
  Serious: Yes (Other)
  Sender: FDA-Public Use
  Company Number: JP-ASTRAZENECA-2014SE12016

PATIENT
  Age: 31 Year
  Sex: Female

DRUGS (9)
  1. DIPRIVAN [Suspect]
     Dosage: DOSE UNKNOWN
     Route: 042
  2. MIDAZOLAM [Concomitant]
     Dosage: DOSE UNKNOWN
     Route: 065
  3. ALEVIATIN [Concomitant]
     Dosage: DOSE UNKNOWN
     Route: 065
  4. DEPAKENE [Concomitant]
     Dosage: DOSE UNKNOWN
     Route: 065
  5. PHENOBAL [Concomitant]
     Dosage: DOSE UNKNOWN
     Route: 065
  6. E KEPPRA [Concomitant]
     Dosage: DOSE UNKNOWN
     Route: 065
  7. THIOPENTAL SODIUM [Concomitant]
     Dosage: DOSE UNKNOWN
     Route: 065
  8. DIAZEPAM [Concomitant]
     Dosage: DOSE UNKNOWN
     Route: 065
  9. FOSPHENYTOIN SODIUM HYDRATE [Concomitant]
     Dosage: DOSE UNKNOWN
     Route: 065

REACTIONS (1)
  - Cardiovascular insufficiency [Recovered/Resolved]
